FAERS Safety Report 15901012 (Version 3)
Quarter: 2019Q1

REPORT INFORMATION
  Report Type: Spontaneous
  Country: US (occurrence: US)
  Receive Date: 20190201
  Receipt Date: 20190312
  Transmission Date: 20190417
  Serious: No
  Sender: FDA-Public Use
  Company Number: US-PFIZER INC-2019048168

PATIENT
  Age: 46 Year
  Sex: Female

DRUGS (3)
  1. PARAPLATIN [Concomitant]
     Active Substance: CARBOPLATIN
     Dosage: UNK
  2. DOCETAXEL. [Suspect]
     Active Substance: DOCETAXEL
     Dosage: 135 MG, UNK (EVERY THREE WEEKS)
     Dates: start: 20121005, end: 20130118
  3. DOCETAXEL. [Suspect]
     Active Substance: DOCETAXEL
     Dosage: 135 MG, UNK (EVERY THREE WEEKS)
     Dates: start: 20121005, end: 20130118

REACTIONS (5)
  - Madarosis [Not Recovered/Not Resolved]
  - Hair texture abnormal [Not Recovered/Not Resolved]
  - Alopecia [Not Recovered/Not Resolved]
  - Hair colour changes [Not Recovered/Not Resolved]
  - Hair disorder [Not Recovered/Not Resolved]

NARRATIVE: CASE EVENT DATE: 201210
